FAERS Safety Report 8518479-2 (Version None)
Quarter: 2012Q3

REPORT INFORMATION
  Report Type: 
  Country: None (occurrence: None)
  Receive Date: 20120718
  Receipt Date: 20120404
  Transmission Date: 20120928
  Serious: Yes (Hospitalization)
  Sender: FDA-Public Use
  Company Number: US-BRISTOL-MYERS SQUIBB COMPANY-16502965

PATIENT
  Age: 47 Year
  Sex: Female
  Weight: 97 kg

DRUGS (3)
  1. COUMADIN [Suspect]
  2. TRACLEER [Concomitant]
  3. TREPROSTINIL [Suspect]
     Indication: PULMONARY ARTERIAL HYPERTENSION
     Route: 058
     Dates: start: 20090825

REACTIONS (1)
  - HAEMOPTYSIS [None]
